FAERS Safety Report 13233534 (Version 5)
Quarter: 2017Q1

REPORT INFORMATION
  Report Type: Spontaneous
  Country: FR (occurrence: FR)
  Receive Date: 20170215
  Receipt Date: 20170321
  Transmission Date: 20170428
  Serious: Yes (Other)
  Sender: FDA-Public Use
  Company Number: FR-ROCHE-1893781

PATIENT
  Age: 56 Year
  Sex: Female

DRUGS (5)
  1. HERCEPTIN [Suspect]
     Active Substance: TRASTUZUMAB
     Indication: BREAST CANCER
     Route: 042
  2. TAXOL [Concomitant]
     Active Substance: PACLITAXEL
     Indication: BREAST CANCER
     Route: 065
     Dates: start: 20161024, end: 20170110
  3. HERCEPTIN [Suspect]
     Active Substance: TRASTUZUMAB
     Indication: BREAST CANCER
     Route: 058
     Dates: start: 20161024
  4. KADCYLA [Suspect]
     Active Substance: ADO-TRASTUZUMAB EMTANSINE
     Indication: HER-2 POSITIVE BREAST CANCER
     Route: 065
  5. HERCEPTIN [Suspect]
     Active Substance: TRASTUZUMAB
     Route: 058
     Dates: start: 20170117

REACTIONS (1)
  - Sudden hearing loss [Unknown]
